FAERS Safety Report 8378470-6 (Version None)
Quarter: 2012Q2

REPORT INFORMATION
  Report Type: 
  Country: None (occurrence: None)
  Receive Date: 20120522
  Receipt Date: 20120302
  Transmission Date: 20120825
  Serious: No
  Sender: FDA-Public Use
  Company Number: US-ASTRAZENECA-2012SE14986

PATIENT
  Age: 60 Year
  Sex: Male
  Weight: 67.1 kg

DRUGS (2)
  1. HIGH BLOOD PRESSURE MEDICATIONS [Concomitant]
  2. OMEPRAZOLE [Suspect]
     Indication: GASTROOESOPHAGEAL REFLUX DISEASE
     Route: 048
     Dates: start: 20111201

REACTIONS (2)
  - WEIGHT DECREASED [None]
  - DRUG INEFFECTIVE [None]
